FAERS Safety Report 4897960-1 (Version None)
Quarter: 2006Q1

REPORT INFORMATION
  Report Type: 
  Country: None (occurrence: None)
  Receive Date: 20060201
  Receipt Date: 20060130
  Transmission Date: 20060701
  Serious: Yes (Other)
  Sender: FDA-Public Use
  Company Number: US-GLAXOSMITHKLINE-A0591396A

PATIENT
  Sex: Female

DRUGS (1)
  1. DEBROX DROPS [Suspect]
     Dosage: 6DROP SINGLE DOSE
     Route: 001

REACTIONS (1)
  - EAR HAEMORRHAGE [None]
